FAERS Safety Report 14839065 (Version 2)
Quarter: 2018Q2

REPORT INFORMATION
  Report Type: Spontaneous
  Country: NL (occurrence: NL)
  Receive Date: 20180502
  Receipt Date: 20180618
  Transmission Date: 20180711
  Serious: Yes (Other)
  Sender: FDA-Public Use
  Company Number: NL-PFIZER INC-2018171845

PATIENT
  Age: 26 Year
  Sex: Female
  Weight: 174 kg

DRUGS (9)
  1. OXYCODON [Concomitant]
     Active Substance: OXYCODONE
     Dosage: UNK
  2. SERTRALINE [Concomitant]
     Active Substance: SERTRALINE HYDROCHLORIDE
     Dosage: UNK
  3. PANTOPRAZOL [Concomitant]
     Active Substance: PANTOPRAZOLE SODIUM
     Dosage: UNK
  4. CLOZAPINE. [Concomitant]
     Active Substance: CLOZAPINE
     Dosage: UNK
  5. PROMETAZIN [Concomitant]
     Active Substance: PROMETHAZINE HYDROCHLORIDE
     Dosage: UNK
  6. METHYL PHENIDATE [Concomitant]
     Active Substance: METHYLPHENIDATE HYDROCHLORIDE
     Dosage: UNK
  7. LACTULOSE. [Concomitant]
     Active Substance: LACTULOSE
     Dosage: UNK
  8. DEPO-PROVERA [Suspect]
     Active Substance: MEDROXYPROGESTERONE ACETATE
     Indication: CONTRACEPTION
     Dosage: 150 MG, 1X/12 WEEKS
     Route: 030
  9. TOPIRAMATE. [Concomitant]
     Active Substance: TOPIRAMATE
     Dosage: UNK

REACTIONS (7)
  - Crying [Recovered/Resolved]
  - Suicidal ideation [Recovered/Resolved]
  - Depressed mood [Recovered/Resolved]
  - Food craving [Recovered/Resolved]
  - Back pain [Recovered/Resolved]
  - Headache [Recovered/Resolved]
  - Abdominal pain [Recovered/Resolved]
